FAERS Safety Report 6495596-2 (Version None)
Quarter: 2009Q4

REPORT INFORMATION
  Report Type: 
  Country: None (occurrence: None)
  Receive Date: 20091214
  Receipt Date: 20090721
  Transmission Date: 20100525
  Serious: No
  Sender: FDA-Public Use
  Company Number: US-BRISTOL-MYERS SQUIBB COMPANY-14709794

PATIENT
  Age: 46 Year
  Sex: Female
  Weight: 109 kg

DRUGS (3)
  1. ABILIFY [Suspect]
     Indication: DEPRESSION
     Dates: start: 20090702, end: 20090701
  2. SIMVASTATIN [Concomitant]
  3. VITAMIN D [Concomitant]

REACTIONS (2)
  - DIZZINESS [None]
  - NAUSEA [None]
